FAERS Safety Report 5667979-1 (Version None)
Quarter: 2008Q1

REPORT INFORMATION
  Report Type: 
  Country: None (occurrence: None)
  Receive Date: 20080315
  Receipt Date: 20080212
  Transmission Date: 20080703
  Serious: No
  Sender: FDA-Public Use
  Company Number: US-ABBOTT-08P-163-0438089-00

PATIENT
  Sex: Female
  Weight: 68.1 kg

DRUGS (2)
  1. HUMIRA [Suspect]
     Indication: CROHN'S DISEASE
     Route: 058
     Dates: start: 20080127, end: 20080210
  2. PREDNISONE [Concomitant]
     Indication: CROHN'S DISEASE
     Dosage: DOSING FOR TWO WEEKS
     Route: 048
     Dates: start: 20080212

REACTIONS (5)
  - CHEST DISCOMFORT [None]
  - ERYTHEMA [None]
  - INSOMNIA [None]
  - PARAESTHESIA [None]
  - SKIN BURNING SENSATION [None]
